FAERS Safety Report 4895433-3 (Version None)
Quarter: 2006Q1

REPORT INFORMATION
  Report Type: 
  Country: None (occurrence: None)
  Receive Date: 20060130
  Receipt Date: 20050418
  Transmission Date: 20060701
  Serious: No
  Sender: FDA-Public Use
  Company Number: US-GLAXOSMITHKLINE-A0554560A

PATIENT
  Age: 41 Year
  Sex: Male

DRUGS (1)
  1. EPIVIR-HBV [Suspect]
     Indication: HEPATITIS B
     Route: 048

REACTIONS (1)
  - HEADACHE [None]
